FAERS Safety Report 14228064 (Version 1)
Quarter: 2017Q4

REPORT INFORMATION
  Report Type: Spontaneous
  Country: US (occurrence: None)
  Receive Date: 20171127
  Receipt Date: 20171127
  Transmission Date: 20180321
  Serious: Yes (Life-Threatening, Disabling)
  Sender: FDA-Public Use
  Company Number: None

PATIENT
  Age: 68 Year
  Sex: Female
  Weight: 71.67 kg

DRUGS (6)
  1. IBUPROFEN. [Concomitant]
     Active Substance: IBUPROFEN
  2. CALCIUM CARBONATE. [Concomitant]
     Active Substance: CALCIUM CARBONATE
  3. ASPIRIN. [Concomitant]
     Active Substance: ASPIRIN
  4. ACYCLOVIR. [Suspect]
     Active Substance: ACYCLOVIR
     Route: 048
  5. DOXYCYCLINE. [Suspect]
     Active Substance: DOXYCYCLINE
     Route: 048
  6. CEPHALEXIN. [Suspect]
     Active Substance: CEPHALEXIN
     Indication: SKIN INFECTION
     Route: 048
     Dates: start: 2016, end: 2017

REACTIONS (4)
  - Muscle strain [None]
  - Infection [None]
  - Pain in extremity [None]
  - Drug ineffective [None]

NARRATIVE: CASE EVENT DATE: 201702
